FAERS Safety Report 4575922-1 (Version None)
Quarter: 2005Q1

REPORT INFORMATION
  Report Type: 
  Country: None (occurrence: None)
  Receive Date: 20050204
  Receipt Date: 20050125
  Transmission Date: 20050727
  Serious: Yes (Hospitalization, Disabling, Other)
  Sender: FDA-Public Use
  Company Number: 2005019545

PATIENT
  Age: 42 Year
  Sex: Female

DRUGS (9)
  1. ALDACTONE [Suspect]
     Indication: HYPERTENSION
     Dosage: 50 MG (QD), ORAL
     Route: 048
     Dates: start: 20040715, end: 20040826
  2. MINIPRESS [Suspect]
     Indication: HYPERTENSION
     Dosage: 8 MG (QD), ORAL
     Route: 048
     Dates: start: 20040701, end: 20040826
  3. ARICEPT [Suspect]
     Indication: DEMENTIA ALZHEIMER'S TYPE
     Dosage: 5 MG (QD), ORAL
     Route: 048
     Dates: start: 20040710, end: 20040826
  4. METOPROLOL TARTRATE [Suspect]
     Indication: ILL-DEFINED DISORDER
  5. DELAPRIL HYDROCHLORIDE (DELAPRIL HYDROHCLORIDE) [Suspect]
     Indication: HYPERTENSION
     Dosage: 30 MG (QD), ORAL
     Route: 048
     Dates: start: 20040717, end: 20040826
  6. CANDESARTAN CILEXETIL (CANDESARTAN CILEXETIL) [Suspect]
     Indication: HYPERTENSION
     Dosage: 4 MG (QD), ORAL
     Route: 048
     Dates: start: 20040710, end: 20040826
  7. TIAPRIDE HYDROCHLORIDE (TIAPRIDE HYDROCHLORIDE) [Concomitant]
  8. PANTETHINE (PANTETHINE) [Concomitant]
  9. NITRAZEPAM [Concomitant]

REACTIONS (7)
  - BRADYCARDIA [None]
  - DRUG INTERACTION [None]
  - HYPOXIA [None]
  - INTRACRANIAL PRESSURE INCREASED [None]
  - NERVOUS SYSTEM DISORDER [None]
  - NEUROLEPTIC MALIGNANT SYNDROME [None]
  - SHOCK [None]
